FAERS Safety Report 4588510-8 (Version None)
Quarter: 2005Q1

REPORT INFORMATION
  Report Type: 
  Country: None (occurrence: None)
  Receive Date: 20050222
  Receipt Date: 20050210
  Transmission Date: 20050727
  Serious: Yes (Other)
  Sender: FDA-Public Use
  Company Number: PHBS2005US02435

PATIENT
  Age: 8 Year
  Sex: Female

DRUGS (1)
  1. METHYLPHENIDATE [Suspect]
     Indication: ATTENTION DEFICIT/HYPERACTIVITY DISORDER
     Dosage: 17.5 MG, ONCE/SINGLE
     Route: 065

REACTIONS (4)
  - ABDOMINAL PAIN [None]
  - DIPLOPIA [None]
  - PAIN IN EXTREMITY [None]
  - VISUAL DISTURBANCE [None]
